FAERS Safety Report 4519414-4 (Version None)
Quarter: 2004Q4

REPORT INFORMATION
  Report Type: 
  Country: None (occurrence: None)
  Receive Date: 20041202
  Receipt Date: 20041123
  Transmission Date: 20050328
  Serious: Yes (Death, Hospitalization, Other)
  Sender: FDA-Public Use
  Company Number: 2004088700

PATIENT
  Age: 71 Year
  Sex: Male

DRUGS (1)
  1. LIPITOR [Suspect]
     Indication: BLOOD CHOLESTEROL INCREASED
     Dosage: 20 MG (20 MG, 1 IN 1 D), ORAL
     Route: 048
     Dates: start: 20040601

REACTIONS (5)
  - BLOOD CHOLESTEROL DECREASED [None]
  - FEELING ABNORMAL [None]
  - HEPATIC FAILURE [None]
  - RENAL FAILURE [None]
  - RHABDOMYOLYSIS [None]
